FAERS Safety Report 25516626 (Version 1)
Quarter: 2025Q3

REPORT INFORMATION
  Report Type: Spontaneous
  Country: US (occurrence: US)
  Receive Date: 20250704
  Receipt Date: 20250704
  Transmission Date: 20251021
  Serious: No
  Sender: RADIUS PHARM
  Company Number: US-RADIUS HEALTH INC.-2025US002394

PATIENT
  Sex: Female
  Weight: 52.2 kg

DRUGS (11)
  1. TYMLOS [Suspect]
     Active Substance: ABALOPARATIDE
     Indication: Senile osteoporosis
     Route: 058
     Dates: start: 20250225
  2. CITRUCEL [Concomitant]
     Active Substance: METHYLCELLULOSE (4000 CPS)
     Indication: Product used for unknown indication
  3. MILK OF MAGNESIA [Concomitant]
     Active Substance: MAGNESIUM HYDROXIDE
     Indication: Product used for unknown indication
  4. VITAMIN C [Concomitant]
     Active Substance: ASCORBIC ACID
     Indication: Product used for unknown indication
  5. BIOTIN [Concomitant]
     Active Substance: BIOTIN
     Indication: Product used for unknown indication
  6. VITAMIN D3 [Concomitant]
     Active Substance: CHOLECALCIFEROL
     Indication: Product used for unknown indication
  7. CALCIUM [Concomitant]
     Active Substance: CALCIUM
     Indication: Product used for unknown indication
  8. CYANOCOBALAMIN [Concomitant]
     Active Substance: CYANOCOBALAMIN
     Indication: Product used for unknown indication
  9. MULTIVITAMIN [ASCORBIC ACID;COLECALCIFEROL;NICOTINAMIDE;PYRIDOXINE HYD [Concomitant]
  10. LEVOTHYROXINE SODIUM [Concomitant]
     Active Substance: LEVOTHYROXINE SODIUM
     Indication: Product used for unknown indication
  11. ALENDRONATE SODIUM [Concomitant]
     Active Substance: ALENDRONATE SODIUM

REACTIONS (3)
  - Nausea [Unknown]
  - Constipation [Unknown]
  - Retching [Unknown]
